FAERS Safety Report 11737912 (Version 3)
Quarter: 2019Q1

REPORT INFORMATION
  Report Type: Spontaneous
  Country: DE (occurrence: DE)
  Receive Date: 20151113
  Receipt Date: 20190122
  Transmission Date: 20190417
  Serious: Yes (Other)
  Sender: FDA-Public Use
  Company Number: PHHY2015DE144572

PATIENT
  Age: 42 Year
  Sex: Female
  Weight: 57 kg

DRUGS (3)
  1. FUROSEMIDE. [Suspect]
     Active Substance: FUROSEMIDE
     Dosage: 20 MG, QD
     Route: 065
  2. POTASSIUM [Concomitant]
     Active Substance: POTASSIUM
     Indication: HYPOKALAEMIA
     Dosage: 40 MMOL, QD
     Route: 048
  3. FUROSEMIDE. [Suspect]
     Active Substance: FUROSEMIDE
     Indication: BULIMIA NERVOSA
     Dosage: 180 MG, QD
     Route: 065

REACTIONS (10)
  - Drug abuse [Unknown]
  - Drug tolerance [Unknown]
  - Drug dependence [Unknown]
  - Nephrocalcinosis [Unknown]
  - Anxiety [Unknown]
  - Off label use [Unknown]
  - Restlessness [Unknown]
  - Hypokalaemia [Recovered/Resolved]
  - Withdrawal syndrome [Unknown]
  - Oedema [Unknown]
